FAERS Safety Report 23201052 (Version 1)
Quarter: 2023Q4

REPORT INFORMATION
  Report Type: Report from Study
  Country: DE (occurrence: DE)
  Receive Date: 20231118
  Receipt Date: 20231118
  Transmission Date: 20240110
  Serious: Yes (Hospitalization, Other)
  Sender: FDA-Public Use
  Company Number: DE-ABBVIE-5493854

PATIENT
  Age: 78 Year
  Sex: Female

DRUGS (11)
  1. SKYRIZI [Suspect]
     Active Substance: RISANKIZUMAB-RZAA
     Indication: Psoriasis
     Dosage: FORM STRENGTH: 150 MG
     Route: 058
     Dates: start: 20201126
  2. Novodigal [Concomitant]
     Indication: Product used for unknown indication
  3. ELIQUIS [Concomitant]
     Active Substance: APIXABAN
     Indication: Anticoagulant therapy
     Dosage: FORM STRENGTH: 5 MG
     Dates: start: 2017
  4. VERAPAMIL AL [Concomitant]
     Indication: Product used for unknown indication
     Dosage: TIME INTERVAL: 0.33333333 DAYS: FORM STRENGTH: 80 MG
  5. ATORVASTATIN [Concomitant]
     Active Substance: ATORVASTATIN
     Indication: Product used for unknown indication
     Dosage: FORM STRENGTH: 20 MG
  6. CHOLECALCIFEROL [Concomitant]
     Active Substance: CHOLECALCIFEROL
     Indication: Product used for unknown indication
     Dosage: FORM STRENGTH: 1000 INTERNATIONAL UNIT
  7. PANTOPRAZOLE SODIUM [Concomitant]
     Active Substance: PANTOPRAZOLE SODIUM
     Indication: Product used for unknown indication
     Dosage: FORM STRENGTH: 20 MG
  8. METAMIZOL [Concomitant]
     Active Substance: METAMIZOLE SODIUM
     Indication: Product used for unknown indication
     Dosage: 500 MG/ML DROPS
  9. TORSEMIDE [Concomitant]
     Active Substance: TORSEMIDE
     Indication: Product used for unknown indication
     Dosage: FORM STRENGTH: 10 MG
  10. RAMIPRIL [Concomitant]
     Active Substance: RAMIPRIL
     Indication: Product used for unknown indication
     Dosage: FORM STRENGTH: 2.5 MG
  11. NAPROXEN STADA [Concomitant]
     Indication: Product used for unknown indication
     Dosage: FORM STRENGTH: 500  MG

REACTIONS (23)
  - Pelvic fracture [Recovered/Resolved]
  - General physical health deterioration [Not Recovered/Not Resolved]
  - COVID-19 [Unknown]
  - Haematoma [Unknown]
  - Gait disturbance [Unknown]
  - Lung infiltration [Unknown]
  - Fall [Unknown]
  - Pain [Unknown]
  - Folate deficiency [Unknown]
  - Upper respiratory tract infection [Recovered/Resolved]
  - Dyspnoea [Recovering/Resolving]
  - Cough [Recovering/Resolving]
  - Abdominal pain [Recovering/Resolving]
  - Autoimmune thyroiditis [Unknown]
  - Constipation [Unknown]
  - Fall [Unknown]
  - Hypothyroidism [Unknown]
  - Hypoalbuminaemia [Unknown]
  - Fatigue [Unknown]
  - Mobility decreased [Recovering/Resolving]
  - Pneumonia [Unknown]
  - Hip surgery [Recovered/Resolved]
  - Nausea [Recovering/Resolving]

NARRATIVE: CASE EVENT DATE: 20221101
